FAERS Safety Report 23809947 (Version 1)
Quarter: 2024Q2

REPORT INFORMATION
  Report Type: Report from Study
  Country: US (occurrence: US)
  Receive Date: 20240502
  Receipt Date: 20240502
  Transmission Date: 20240716
  Serious: Yes (Other)
  Sender: FDA-Public Use
  Company Number: US-ABBVIE-5739225

PATIENT
  Sex: Male

DRUGS (1)
  1. VENCLEXTA [Suspect]
     Active Substance: VENETOCLAX
     Indication: Acute myeloid leukaemia recurrent
     Route: 048
     Dates: start: 202006

REACTIONS (6)
  - Neoplasm [Unknown]
  - Nervous system disorder [Unknown]
  - Neuralgia [Unknown]
  - Musculoskeletal disorder [Unknown]
  - Muscle tightness [Unknown]
  - Dysstasia [Unknown]

NARRATIVE: CASE EVENT DATE: 20240101
